FAERS Safety Report 7579141-6 (Version None)
Quarter: 2011Q2

REPORT INFORMATION
  Report Type: 
  Country: None (occurrence: None)
  Receive Date: 20110628
  Receipt Date: 20110624
  Transmission Date: 20111010
  Serious: Yes (Hospitalization)
  Sender: FDA-Public Use
  Company Number: GB-PFIZER INC-2011141920

PATIENT
  Age: 15 Year
  Sex: Female

DRUGS (2)
  1. CLOZAPINE [Suspect]
     Dosage: 25 MG, 2X/DAY
     Route: 048
     Dates: start: 20110517, end: 20110614
  2. SERTRALINE HYDROCHLORIDE [Suspect]
     Dosage: UNK

REACTIONS (2)
  - NEUTROPENIA [None]
  - NEUTROPHIL COUNT DECREASED [None]
